FAERS Safety Report 8030917-0 (Version None)
Quarter: 2012Q1

REPORT INFORMATION
  Report Type: 
  Country: None (occurrence: None)
  Receive Date: 20120109
  Receipt Date: 20111230
  Transmission Date: 20120608
  Serious: Yes (Hospitalization)
  Sender: FDA-Public Use
  Company Number: IN-ABBOTT-12P-078-0888591-00

PATIENT
  Sex: Female
  Weight: 62 kg

DRUGS (4)
  1. RITONAVIR [Concomitant]
     Indication: HIV INFECTION
     Route: 048
     Dates: start: 20081020, end: 20100405
  2. LAMIVUDINE + ZIDOVUDINE [Concomitant]
     Indication: HIV INFECTION
     Dosage: 300MG/150MG
     Route: 048
     Dates: start: 20081020
  3. ATAZANAVIR SULFATE [Concomitant]
     Indication: HIV INFECTION
     Route: 048
     Dates: start: 20081020
  4. RITONAVIR [Suspect]
     Indication: HIV INFECTION
     Route: 048
     Dates: start: 20100405

REACTIONS (4)
  - EPILEPSY [None]
  - SOMNOLENCE [None]
  - FATIGUE [None]
  - INCORRECT DOSE ADMINISTERED [None]
